FAERS Safety Report 12390038 (Version 1)
Quarter: 2016Q2

REPORT INFORMATION
  Report Type: Spontaneous
  Country: MY (occurrence: MY)
  Receive Date: 20160520
  Receipt Date: 20160520
  Transmission Date: 20160815
  Serious: Yes (Other)
  Sender: FDA-Public Use
  Company Number: PHHY2016MY066497

PATIENT
  Age: 18 Year
  Sex: Male

DRUGS (1)
  1. MEROPENEM. [Suspect]
     Active Substance: MEROPENEM
     Indication: CEREBRAL TOXOPLASMOSIS
     Dosage: 2 G, TID
     Route: 042

REACTIONS (4)
  - Depressed level of consciousness [Recovering/Resolving]
  - Condition aggravated [Recovering/Resolving]
  - Pyrexia [Recovering/Resolving]
  - Toxoplasmosis [Recovering/Resolving]
